FAERS Safety Report 11540247 (Version 3)
Quarter: 2015Q4

REPORT INFORMATION
  Report Type: Spontaneous
  Country: US (occurrence: US)
  Receive Date: 20150923
  Receipt Date: 20151109
  Transmission Date: 20160304
  Serious: Yes (Other)
  Sender: FDA-Public Use
  Company Number: US-ENDO PHARMACEUTICALS INC.-2015-002957

PATIENT
  Sex: Female

DRUGS (5)
  1. PREDNISONE TABLETS [Suspect]
     Active Substance: PREDNISONE
     Indication: EPILEPSY
     Route: 065
  2. SABRIL [Suspect]
     Active Substance: VIGABATRIN
     Indication: EPILEPSY
     Route: 065
  3. ONFI [Suspect]
     Active Substance: CLOBAZAM
     Indication: EPILEPSY
     Route: 065
  4. ACTH [Suspect]
     Active Substance: CORTICOTROPIN
     Indication: EPILEPSY
     Route: 065
  5. KEPPRA [Suspect]
     Active Substance: LEVETIRACETAM
     Indication: EPILEPSY
     Route: 065

REACTIONS (2)
  - Seizure [Not Recovered/Not Resolved]
  - Drug effect decreased [Not Recovered/Not Resolved]
